FAERS Safety Report 5840910-1 (Version None)
Quarter: 2008Q3

REPORT INFORMATION
  Report Type: 
  Country: None (occurrence: None)
  Receive Date: 20080731
  Receipt Date: 20080508
  Transmission Date: 20090109
  Serious: No
  Sender: FDA-Public Use
  Company Number: US200805001879

PATIENT
  Age: 65 Year
  Sex: Male
  Weight: 108.8 kg

DRUGS (2)
  1. BYETTA [Suspect]
     Indication: TYPE 2 DIABETES MELLITUS
     Dosage: 5 UG, SUBCUTANEOUS; 10 UG, 2/D, SUBCUTANEOUS
     Route: 058
     Dates: start: 20080101, end: 20080101
  2. . [Concomitant]

REACTIONS (5)
  - DRUG INEFFECTIVE [None]
  - HYPERCHLORHYDRIA [None]
  - INJECTION SITE HAEMORRHAGE [None]
  - NAUSEA [None]
  - STOMACH DISCOMFORT [None]
